FAERS Safety Report 8934891 (Version 1)
Quarter: 2012Q4

REPORT INFORMATION
  Report Type: 
  Country: US (occurrence: US)
  Receive Date: 20121129
  Receipt Date: 20121129
  Transmission Date: 20130627
  Serious: No
  Sender: FDA-Public Use
  Company Number: US-TARO-2011P1009923

PATIENT
  Age: 61 Year
  Sex: Female
  Weight: 74.39 kg

DRUGS (3)
  1. CARBAMAZEPINE [Suspect]
     Dates: start: 20110908, end: 20111101
  2. CARBAMAZEPINE [Suspect]
     Dates: start: 20111103, end: 20111103
  3. ASPIRIN [Concomitant]

REACTIONS (2)
  - Feeling jittery [Recovered/Resolved]
  - Feeling abnormal [Recovered/Resolved]
